FAERS Safety Report 6388149-8 (Version None)
Quarter: 2009Q4

REPORT INFORMATION
  Report Type: 
  Country: None (occurrence: None)
  Receive Date: 20091005
  Receipt Date: 20090921
  Transmission Date: 20100525
  Serious: Yes (Hospitalization)
  Sender: FDA-Public Use
  Company Number: IT-MYLANLABS-2009S1016525

PATIENT
  Age: 79 Year
  Sex: Male

DRUGS (11)
  1. HYDROCHLOROTHIAZIDE [Suspect]
     Indication: HYPERTENSION
  2. OXCARBAZEPINE [Suspect]
     Indication: EPILEPSY
     Dates: start: 20050101
  3. SULPIRIDE [Concomitant]
  4. TETRAZEPAM [Concomitant]
  5. OMEPRAZOLE [Concomitant]
  6. TIOTROPIUM BROMIDE [Concomitant]
  7. BUDESONIDE [Concomitant]
  8. FORMOTEROL FUMARATE [Concomitant]
     Route: 055
  9. DEXKETOPROFEN [Concomitant]
  10. ENALAPRIL MALEATE [Concomitant]
  11. DEFLAZACORT [Concomitant]
     Indication: DYSPNOEA

REACTIONS (2)
  - HYPONATRAEMIA [None]
  - INAPPROPRIATE ANTIDIURETIC HORMONE SECRETION [None]
